FAERS Safety Report 9879613 (Version 1)
Quarter: 2014Q1

REPORT INFORMATION
  Report Type: Spontaneous
  Country: CN (occurrence: CN)
  Receive Date: 20140206
  Receipt Date: 20140206
  Transmission Date: 20141002
  Serious: Yes (Hospitalization, Other)
  Sender: FDA-Public Use
  Company Number: PHHY2014CN012555

PATIENT
  Age: 18 Year
  Sex: Male

DRUGS (1)
  1. CARBAMAZEPINE [Suspect]
     Indication: EPILEPSY

REACTIONS (14)
  - Lung infection [Recovered/Resolved]
  - Cough [Recovered/Resolved]
  - Pleural effusion [Recovered/Resolved]
  - Erythema multiforme [Recovered/Resolved]
  - Dermatitis [Recovered/Resolved]
  - Rash [Recovered/Resolved]
  - Erythema [Recovered/Resolved]
  - Mucosal ulceration [Recovered/Resolved]
  - Local swelling [Recovered/Resolved]
  - Pharyngitis [Recovered/Resolved]
  - Pyrexia [Recovered/Resolved]
  - Scrotal ulcer [Recovered/Resolved]
  - Drug eruption [Recovered/Resolved]
  - Hepatic function abnormal [Recovered/Resolved]
